FAERS Safety Report 4741020-7 (Version None)
Quarter: 2005Q3

REPORT INFORMATION
  Report Type: 
  Country: None (occurrence: None)
  Receive Date: 20050810
  Receipt Date: 20050603
  Transmission Date: 20060218
  Serious: No
  Sender: FDA-Public Use
  Company Number: US-GLAXOSMITHKLINE-A0561147A

PATIENT
  Age: 41 Year
  Sex: Female

DRUGS (4)
  1. PAXIL [Suspect]
     Indication: DEPRESSION
     Dosage: 20MG PER DAY
     Route: 048
     Dates: start: 20010101, end: 20050301
  2. GLUCOPHAGE [Concomitant]
  3. AVALIDE [Concomitant]
  4. PRAVACHOL [Concomitant]

REACTIONS (13)
  - ABDOMINAL DISTENSION [None]
  - ANXIETY [None]
  - BLOOD PRESSURE INCREASED [None]
  - DEPRESSED MOOD [None]
  - DIZZINESS [None]
  - DRUG WITHDRAWAL SYNDROME [None]
  - GASTROINTESTINAL MOTILITY DISORDER [None]
  - HEADACHE [None]
  - INSOMNIA [None]
  - NAUSEA [None]
  - POLLAKIURIA [None]
  - POST-TRAUMATIC STRESS DISORDER [None]
  - WEIGHT INCREASED [None]
